FAERS Safety Report 8126943-3 (Version None)
Quarter: 2012Q1

REPORT INFORMATION
  Report Type: 
  Country: None (occurrence: None)
  Receive Date: 20120210
  Receipt Date: 20120131
  Transmission Date: 20120608
  Serious: Yes (Hospitalization, Other)
  Sender: FDA-Public Use
  Company Number: US-JNJCP-30000089090

PATIENT
  Age: 9 Week
  Sex: Male
  Weight: 5 kg

DRUGS (3)
  1. VITAMIN D DROPS [Concomitant]
     Indication: VITAMIN SUPPLEMENTATION
  2. AVE BABY  CLEANSING THERAPY MOIST WASH USA 38137101844 8137101844USA [Suspect]
     Indication: ECZEMA
     Dosage: ALL OVER BODY TWICE A DAY
     Route: 061
     Dates: start: 20120117, end: 20120118
  3. AVE BABY ECZEMA THERAPY MOIST CREAM 5OZ USA 38137101845 8137101845USA [Suspect]
     Indication: ECZEMA
     Dosage: ALL OVER BODY TWICE A DAY
     Route: 061
     Dates: start: 20120117, end: 20120118

REACTIONS (1)
  - STAPHYLOCOCCAL INFECTION [None]
